FAERS Safety Report 25153066 (Version 1)
Quarter: 2025Q2

REPORT INFORMATION
  Report Type: Spontaneous
  Country: CN (occurrence: CN)
  Receive Date: 20250403
  Receipt Date: 20250403
  Transmission Date: 20250716
  Serious: Yes (Disabling)
  Sender: CHEPLAPHARM
  Company Number: CN-CHEPLA-2025004166

PATIENT
  Age: 30 Year
  Sex: Female
  Weight: 69 kg

DRUGS (7)
  1. CAPECITABINE [Suspect]
     Active Substance: CAPECITABINE
     Indication: Rectal cancer
     Route: 048
     Dates: start: 20240522
  2. CAPECITABINE [Suspect]
     Active Substance: CAPECITABINE
     Indication: Rectal cancer
     Dosage: APPROVAL NO. GYZZ H20073023; A TOTAL OF 8 CYCLES OF CHEMOTHERAPY WERE COMPLETED
     Route: 048
     Dates: start: 20241022, end: 20241104
  3. OXALIPLATIN [Suspect]
     Active Substance: OXALIPLATIN
     Indication: Liver injury
     Route: 042
     Dates: start: 20240522
  4. OXALIPLATIN [Suspect]
     Active Substance: OXALIPLATIN
     Indication: Rectal cancer
     Route: 042
     Dates: start: 20240522
  5. OXALIPLATIN [Suspect]
     Active Substance: OXALIPLATIN
     Indication: Liver injury
     Dosage: APPROVAL NO. GYZZ HJ20171064; A TOTAL OF 8 CYCLES OF CHEMOTHERAPY WERE COMPLETED
     Route: 042
     Dates: start: 20241022, end: 20241022
  6. OXALIPLATIN [Suspect]
     Active Substance: OXALIPLATIN
     Indication: Rectal cancer
     Dosage: APPROVAL NO. GYZZ HJ20171064; A TOTAL OF 8 CYCLES OF CHEMOTHERAPY WERE COMPLETED
     Route: 042
     Dates: start: 20241022, end: 20241022
  7. DEXTROSE [Concomitant]
     Active Substance: DEXTROSE MONOHYDRATE
     Indication: Rectal cancer
     Dosage: ROA: INTRAVENOUS INFUSION; APPROVAL NO. GYZZ H43020476; A TOTAL OF 8 CYCLES OF CHEMOTHERAPY WERE ...
     Route: 042
     Dates: start: 20241022, end: 20241022

REACTIONS (1)
  - Deafness neurosensory [Not Recovered/Not Resolved]

NARRATIVE: CASE EVENT DATE: 20241029
